FAERS Safety Report 10260922 (Version 1)
Quarter: 2014Q2

REPORT INFORMATION
  Report Type: Other
  Country: GB (occurrence: GB)
  Receive Date: 20140626
  Receipt Date: 20140626
  Transmission Date: 20141212
  Serious: Yes (Disabling)
  Sender: FDA-Public Use
  Company Number: GB-LUPIN PHARMACEUTICALS INC.-E2B_00001666

PATIENT
  Age: 60 Year
  Sex: Male
  Weight: 82.55 kg

DRUGS (13)
  1. SIMVASTATIN [Suspect]
     Indication: HYPERCHOLESTEROLAEMIA
     Route: 048
     Dates: end: 20100404
  2. ROSUVASTATIN [Suspect]
     Indication: HYPERCHOLESTEROLAEMIA
     Route: 065
  3. INSULIN GLULISINE [Concomitant]
     Indication: PRODUCT USED FOR UNKNOWN INDICATION
     Route: 065
  4. ASPIRIN [Concomitant]
     Indication: PRODUCT USED FOR UNKNOWN INDICATION
     Route: 065
  5. METFORMIN [Concomitant]
     Indication: PRODUCT USED FOR UNKNOWN INDICATION
     Route: 065
  6. INSULIN GLARGINE [Concomitant]
     Indication: PRODUCT USED FOR UNKNOWN INDICATION
  7. CO-CODAMOL [Concomitant]
     Indication: PRODUCT USED FOR UNKNOWN INDICATION
     Dosage: 15/500MG
     Route: 065
  8. IBUPROFEN [Concomitant]
     Indication: PRODUCT USED FOR UNKNOWN INDICATION
     Route: 065
  9. OMEPRAZOLE [Concomitant]
     Indication: PRODUCT USED FOR UNKNOWN INDICATION
     Route: 065
     Dates: start: 201311
  10. LAXIDO [Concomitant]
     Indication: GASTROINTESTINAL DISORDER
     Route: 065
  11. VOLTAROL [Concomitant]
     Indication: ARTHRALGIA
     Route: 065
  12. DEEP HEAT [Concomitant]
     Indication: ARTHRALGIA
     Dosage: APPLIED ON A MORNING TO KNEES TO RELIEVE PAIN
     Route: 065
  13. GREEN-LIPPED MUSSEL [Concomitant]
     Route: 065

REACTIONS (2)
  - Muscle atrophy [Recovered/Resolved]
  - Amnesia [Recovered/Resolved]
